FAERS Safety Report 5288599-7 (Version None)
Quarter: 2007Q2

REPORT INFORMATION
  Report Type: 
  Country: None (occurrence: None)
  Receive Date: 20070405
  Receipt Date: 20070327
  Transmission Date: 20071010
  Serious: Yes (Hospitalization)
  Sender: FDA-Public Use
  Company Number: DE-ABBOTT-07P-062-0361104-00

PATIENT
  Sex: Male
  Weight: 97 kg

DRUGS (2)
  1. ZEMPLAR [Suspect]
     Indication: HYPERPARATHYROIDISM SECONDARY
     Route: 042
     Dates: start: 20060914
  2. ZEMPLAR [Suspect]

REACTIONS (3)
  - C-REACTIVE PROTEIN INCREASED [None]
  - SKIN NECROSIS [None]
  - WHITE BLOOD CELL COUNT INCREASED [None]
